FAERS Safety Report 4955330-1 (Version None)
Quarter: 2006Q1

REPORT INFORMATION
  Report Type: 
  Country: None (occurrence: None)
  Receive Date: 20060328
  Receipt Date: 20060316
  Transmission Date: 20060701
  Serious: Yes (Other)
  Sender: FDA-Public Use
  Company Number: DE-JNJFOC-20060304642

PATIENT
  Age: 49 Year
  Sex: Male

DRUGS (4)
  1. RISPERDAL [Suspect]
     Indication: SCHIZOPHRENIA
     Dosage: SINCE 5 YEARS
     Route: 065
  2. CLOZAPINE [Suspect]
     Indication: DRUG USE FOR UNKNOWN INDICATION
     Dosage: SINCE 20 YEARS
  3. CONVULEX [Suspect]
     Indication: DRUG USE FOR UNKNOWN INDICATION
  4. GASTROZEPIN [Suspect]
     Indication: SCHIZOPHRENIA

REACTIONS (1)
  - BLOOD CREATININE INCREASED [None]
